FAERS Safety Report 21392320 (Version 3)
Quarter: 2022Q4

REPORT INFORMATION
  Report Type: Report from Study
  Country: US (occurrence: US)
  Receive Date: 20220929
  Receipt Date: 20221019
  Transmission Date: 20230113
  Serious: Yes (Hospitalization)
  Sender: FDA-Public Use
  Company Number: US-NOVARTISPH-NVSC2022US218689

PATIENT
  Sex: Female
  Weight: 82.4 kg

DRUGS (3)
  1. TREPROSTINIL [Suspect]
     Active Substance: TREPROSTINIL
     Indication: Pulmonary arterial hypertension
     Dosage: 13 NG/KG/MIN, CONT
     Route: 042
     Dates: start: 20220913
  2. TREPROSTINIL [Suspect]
     Active Substance: TREPROSTINIL
     Dosage: 12/ NG/KG/MIN, CONT
     Route: 042
     Dates: start: 20220914
  3. TREPROSTINIL [Suspect]
     Active Substance: TREPROSTINIL
     Dosage: 10/ NG/KG/MIN, CONT
     Route: 042
     Dates: start: 20220920

REACTIONS (7)
  - Feeling cold [Unknown]
  - Pain in extremity [Unknown]
  - Fluid retention [Unknown]
  - Peripheral swelling [Unknown]
  - Dyspnoea [Unknown]
  - Headache [Not Recovered/Not Resolved]
  - Diarrhoea [Not Recovered/Not Resolved]
